FAERS Safety Report 18260285 (Version 3)
Quarter: 2020Q4

REPORT INFORMATION
  Report Type: Spontaneous
  Country: AR (occurrence: AR)
  Receive Date: 20200914
  Receipt Date: 20201105
  Transmission Date: 20210113
  Serious: Yes (Other)
  Sender: FDA-Public Use
  Company Number: AR-PFIZER INC-2020351204

PATIENT
  Age: 70 Year
  Sex: Female

DRUGS (1)
  1. XELJANZ [Suspect]
     Active Substance: TOFACITINIB CITRATE
     Indication: RHEUMATOID ARTHRITIS
     Dosage: 5 MG, 2X/DAY
     Dates: start: 20160701

REACTIONS (6)
  - Arthropathy [Unknown]
  - Femur fracture [Unknown]
  - Arthralgia [Unknown]
  - Drug ineffective [Unknown]
  - Fall [Unknown]
  - Mood altered [Unknown]
